FAERS Safety Report 11421993 (Version 1)
Quarter: 2015Q3

REPORT INFORMATION
  Report Type: Spontaneous
  Country: GB (occurrence: GB)
  Receive Date: 20150827
  Receipt Date: 20150827
  Transmission Date: 20151125
  Serious: Yes (Life-Threatening, Hospitalization)
  Sender: FDA-Public Use
  Company Number: GB-AUROBINDO-AUR-APL-2015-07433

PATIENT
  Age: 46 Year
  Sex: Male
  Weight: 100 kg

DRUGS (5)
  1. ALLOPURINOL. [Concomitant]
     Active Substance: ALLOPURINOL
     Indication: GOUT
     Dosage: 300 MG, UNK
     Route: 048
     Dates: start: 2008
  2. ASPIRIN. [Suspect]
     Active Substance: ASPIRIN
     Indication: DIABETES MELLITUS
     Dosage: 75 MG, UNK
     Route: 048
     Dates: end: 20150716
  3. METFORMIN [Concomitant]
     Active Substance: METFORMIN HYDROCHLORIDE
     Indication: DIABETES MELLITUS
     Dosage: 500 MG, UNK
     Route: 048
     Dates: start: 2012
  4. SIMVASTATIN 40MG [Suspect]
     Active Substance: SIMVASTATIN
     Indication: BLOOD CHOLESTEROL INCREASED
     Dosage: 40 MG, UNK
     Route: 048
     Dates: end: 20150716
  5. CITALOPRAM [Suspect]
     Active Substance: CITALOPRAM HYDROBROMIDE
     Indication: DEPRESSION
     Dosage: 10 MG, UNK
     Route: 048
     Dates: start: 2000, end: 20150716

REACTIONS (3)
  - Angioedema [Recovered/Resolved]
  - Diabetes mellitus [Recovered/Resolved]
  - Off label use [Recovered/Resolved]

NARRATIVE: CASE EVENT DATE: 201412
